FAERS Safety Report 14826442 (Version 1)
Quarter: 2018Q2

REPORT INFORMATION
  Report Type: Spontaneous
  Country: US (occurrence: US)
  Receive Date: 20180404
  Receipt Date: 20180404
  Transmission Date: 20180711
  Serious: Yes (Death)
  Sender: FDA-Public Use
  Company Number: None

PATIENT
  Sex: Female

DRUGS (9)
  1. MINOXIDIL. [Concomitant]
     Active Substance: MINOXIDIL
  2. EPOGEN [Concomitant]
     Active Substance: ERYTHROPOIETIN
  3. PROCRIT [Suspect]
     Active Substance: ERYTHROPOIETIN
     Indication: RENAL TRANSPLANT
     Route: 058
     Dates: start: 20170804
  4. PREDNISONE. [Concomitant]
     Active Substance: PREDNISONE
  5. CLONIDINE. [Concomitant]
     Active Substance: CLONIDINE
  6. TORSEMIDE. [Concomitant]
     Active Substance: TORSEMIDE
  7. SANDIMMUNE [Concomitant]
     Active Substance: CYCLOSPORINE
  8. EPLERENONE. [Concomitant]
     Active Substance: EPLERENONE
  9. VITAMIN D [Concomitant]
     Active Substance: CHOLECALCIFEROL

REACTIONS (1)
  - Death [None]
